FAERS Safety Report 18530826 (Version 1)
Quarter: 2020Q4

REPORT INFORMATION
  Report Type: Spontaneous
  Country: US (occurrence: US)
  Receive Date: 20201121
  Receipt Date: 20201121
  Transmission Date: 20210114
  Serious: Yes (Other)
  Sender: FDA-Public Use
  Company Number: NVSC2020US305328

PATIENT
  Age: 85 Year
  Sex: Female
  Weight: 43.9 kg

DRUGS (1)
  1. KYMRIAH [Suspect]
     Active Substance: TISAGENLECLEUCEL
     Indication: DIFFUSE LARGE B-CELL LYMPHOMA
     Dosage: UNK
     Route: 042
     Dates: start: 20200702

REACTIONS (11)
  - Immune effector cell-associated neurotoxicity syndrome [Unknown]
  - Post procedural complication [Unknown]
  - Hypotension [Unknown]
  - Multi-organ disorder [Unknown]
  - Pyrexia [Unknown]
  - Altered state of consciousness [Unknown]
  - Cytokine release syndrome [Unknown]
  - Fatigue [Unknown]
  - Neurotoxicity [Unknown]
  - Somnolence [Unknown]
  - Confusional state [Unknown]

NARRATIVE: CASE EVENT DATE: 20200704
